FAERS Safety Report 17258251 (Version 4)
Quarter: 2024Q2

REPORT INFORMATION
  Report Type: Spontaneous
  Country: US (occurrence: US)
  Receive Date: 20200110
  Receipt Date: 20240628
  Transmission Date: 20240716
  Serious: Yes (Hospitalization, Other)
  Sender: FDA-Public Use
  Company Number: US-HIKMA PHARMACEUTICALS-US-H14001-19-06391

PATIENT
  Age: 62 Year
  Sex: Female
  Weight: 54.4 kg

DRUGS (36)
  1. DEXAMETHASONE [Suspect]
     Active Substance: DEXAMETHASONE
     Indication: Eye swelling
     Dosage: 2 MILLIGRAM
     Route: 048
     Dates: start: 20191107
  2. IBRANCE [Suspect]
     Active Substance: PALBOCICLIB
     Indication: Breast cancer metastatic
     Dosage: UNKNOWN
     Route: 048
     Dates: start: 20190227, end: 20191212
  3. LETROZOLE [Suspect]
     Active Substance: LETROZOLE
     Indication: Breast cancer metastatic
     Dosage: UNKNOWN
     Route: 048
     Dates: start: 20190227
  4. TUCATINIB [Suspect]
     Active Substance: TUCATINIB
     Indication: Breast cancer metastatic
     Dosage: 150 MILLIGRAM, BID
     Route: 048
     Dates: start: 20190227, end: 20191212
  5. TUCATINIB [Suspect]
     Active Substance: TUCATINIB
     Dosage: 50 MILLIGRAM, BID
     Route: 048
     Dates: start: 20190520, end: 20191212
  6. ACETAMINOPHEN [Concomitant]
     Active Substance: ACETAMINOPHEN
     Indication: Sepsis
     Dosage: UNKNOWN
     Route: 065
     Dates: start: 20190320, end: 20190320
  7. ACETAMINOPHEN [Concomitant]
     Active Substance: ACETAMINOPHEN
     Dosage: UNKNOWN
     Route: 065
     Dates: start: 20190513
  8. ACETAMINOPHEN [Concomitant]
     Active Substance: ACETAMINOPHEN
     Dosage: UNKNOWN
     Route: 065
     Dates: start: 20190514, end: 20190515
  9. ACYCLOVIR [Concomitant]
     Active Substance: ACYCLOVIR
     Indication: Conjunctivitis
     Dosage: UNKNOWN
     Route: 065
     Dates: start: 20191009, end: 20191023
  10. CANNABIDIOL [Concomitant]
     Active Substance: CANNABIDIOL
     Indication: Ageusia
     Dosage: UNKNOWN
     Route: 065
     Dates: start: 201809, end: 20191007
  11. CEFEPIME [Concomitant]
     Active Substance: CEFEPIME HYDROCHLORIDE
     Indication: Sepsis
     Dosage: UNKNOWN
     Route: 065
     Dates: start: 20190513, end: 20190514
  12. CEFTRIAXONE [Concomitant]
     Active Substance: CEFTRIAXONE\CEFTRIAXONE SODIUM
     Indication: Sepsis
     Dosage: UNKNOWN
     Route: 065
     Dates: start: 20190515, end: 20190516
  13. CIPROFLOXACIN [Concomitant]
     Active Substance: CIPROFLOXACIN
     Indication: Pyrexia
     Dosage: UNKNOWN
     Route: 065
     Dates: start: 20190719, end: 20190728
  14. FISH OIL [Concomitant]
     Active Substance: FISH OIL
     Indication: Supplementation therapy
     Dosage: UNKNOWN
     Route: 065
     Dates: start: 20190102, end: 20190226
  15. GANCICLOVIR [Concomitant]
     Active Substance: GANCICLOVIR
     Indication: Conjunctivitis
     Dosage: UNKNOWN
     Route: 065
     Dates: start: 20191009, end: 20191024
  16. IBUPROFEN [Concomitant]
     Active Substance: IBUPROFEN
     Indication: Sepsis
     Dosage: UNKNOWN
     Route: 065
     Dates: start: 20190513, end: 20190513
  17. IMODIUM [Concomitant]
     Active Substance: LOPERAMIDE HYDROCHLORIDE
     Indication: Diarrhoea
     Dosage: UNKNOWN
     Route: 065
     Dates: start: 20190307, end: 20190321
  18. IMODIUM [Concomitant]
     Active Substance: LOPERAMIDE HYDROCHLORIDE
     Dosage: UNKNOWN
     Route: 065
     Dates: start: 20190408
  19. KYTRIL [Concomitant]
     Active Substance: GRANISETRON HYDROCHLORIDE
     Indication: Nausea
     Dosage: UNKNOWN
     Route: 065
     Dates: start: 20190320, end: 20190320
  20. LACTATED RINGERS SOLUTION [Concomitant]
     Active Substance: CALCIUM CHLORIDE\POTASSIUM CHLORIDE\SODIUM CHLORIDE\SODIUM LACTATE
     Indication: Sepsis
     Dosage: UNKNOWN
     Route: 065
     Dates: start: 20190513, end: 20190513
  21. LACTATED RINGERS SOLUTION [Concomitant]
     Active Substance: CALCIUM CHLORIDE\POTASSIUM CHLORIDE\SODIUM CHLORIDE\SODIUM LACTATE
     Dosage: UNKNOWN
     Route: 065
     Dates: start: 20190514, end: 20190514
  22. LACTOBACILLUS ACIDOPHILUS [Concomitant]
     Active Substance: LACTOBACILLUS ACIDOPHILUS
     Indication: Supplementation therapy
     Dosage: UNKNOWN
     Route: 065
     Dates: start: 20190102, end: 20190516
  23. LEVOFLOXACIN [Concomitant]
     Active Substance: LEVOFLOXACIN
     Indication: Urinary tract infection
     Dosage: UNKNOWN
     Route: 065
     Dates: start: 20190819, end: 20190909
  24. LORAZEPAM [Concomitant]
     Active Substance: LORAZEPAM
     Indication: Nausea
     Dosage: UNKNOWN
     Route: 065
     Dates: start: 20190320
  25. LORAZEPAM [Concomitant]
     Active Substance: LORAZEPAM
     Dosage: UNKNOWN
     Route: 065
     Dates: start: 20190320, end: 20190320
  26. LOSARTAN [Concomitant]
     Active Substance: LOSARTAN
     Indication: Hypertension
     Dosage: UNKNOWN
     Route: 065
     Dates: start: 20190218
  27. MELATONIN [Concomitant]
     Active Substance: MELATONIN
     Indication: Supplementation therapy
     Dosage: UNKNOWN
     Route: 065
     Dates: start: 20190515, end: 20190515
  28. NAPHAZOLINE HYDROCHLORIDE W/PHENIRAMINE [Concomitant]
     Indication: Conjunctivitis
     Dosage: UNKNOWN
     Route: 065
     Dates: start: 20190801, end: 20190909
  29. OMEPRAZOLE [Concomitant]
     Active Substance: OMEPRAZOLE
     Indication: Dyspepsia
     Dosage: UNKNOWN
     Route: 065
     Dates: start: 20190408
  30. PANTOPRAZOLE [Concomitant]
     Active Substance: PANTOPRAZOLE
     Indication: Dyspepsia
     Dosage: UNKNOWN
     Route: 065
     Dates: start: 20190513, end: 20190516
  31. PREDNISONE ACETATE [Concomitant]
     Active Substance: PREDNISONE ACETATE
     Indication: Conjunctivitis
     Dosage: UNKNOWN
     Route: 065
     Dates: start: 20190910, end: 20191105
  32. TOBRAMYCIN AND DEXAMETHASONE [Concomitant]
     Active Substance: DEXAMETHASONE\TOBRAMYCIN
     Indication: Conjunctivitis
     Dosage: UNKNOWN
     Route: 065
     Dates: start: 20191129, end: 20191202
  33. TRAZODONE [Concomitant]
     Active Substance: TRAZODONE HYDROCHLORIDE
     Indication: Supplementation therapy
     Dosage: UNKNOWN
     Route: 065
     Dates: start: 20190515, end: 20190515
  34. VANCOMYCIN [Concomitant]
     Active Substance: VANCOMYCIN
     Indication: Sepsis
     Dosage: UNKNOWN
     Route: 065
     Dates: start: 20190514, end: 20190514
  35. VANCOMYCIN [Concomitant]
     Active Substance: VANCOMYCIN
     Dosage: UNKNOWN
     Route: 065
     Dates: start: 20190515, end: 20190515
  36. ZOMETA [Concomitant]
     Active Substance: ZOLEDRONIC ACID
     Indication: Metastases to bone
     Dosage: UNKNOWN
     Route: 065
     Dates: start: 20190211

REACTIONS (15)
  - Cystitis [Recovered/Resolved]
  - Asthenia [Unknown]
  - Lethargy [Unknown]
  - Sepsis [Unknown]
  - Urinary tract infection [Unknown]
  - Dysuria [Unknown]
  - Pyrexia [Unknown]
  - Tachycardia [Unknown]
  - Myalgia [Unknown]
  - Chest pain [Unknown]
  - Granulocyte count increased [Unknown]
  - Haematocrit decreased [Unknown]
  - Haemoglobin decreased [Unknown]
  - Mean cell volume increased [Unknown]
  - Platelet count decreased [Unknown]

NARRATIVE: CASE EVENT DATE: 20191212
